FAERS Safety Report 9352124 (Version 1)
Quarter: 2013Q2

REPORT INFORMATION
  Report Type: Spontaneous
  Country: US (occurrence: US)
  Receive Date: 20130617
  Receipt Date: 20130617
  Transmission Date: 20140414
  Serious: No
  Sender: FDA-Public Use
  Company Number: US-BIOGENIDEC-2013BI002018

PATIENT
  Age: 38 Year
  Sex: Female

DRUGS (2)
  1. AVONEX [Suspect]
     Indication: MULTIPLE SCLEROSIS
     Route: 030
     Dates: start: 20010803
  2. AVONEX [Suspect]
     Indication: MULTIPLE SCLEROSIS
     Route: 030
     Dates: start: 20130608

REACTIONS (7)
  - Adverse drug reaction [Recovered/Resolved]
  - Abasia [Recovered/Resolved]
  - Drug dose omission [Recovered/Resolved]
  - Fatigue [Not Recovered/Not Resolved]
  - Chills [Recovered/Resolved]
  - Anxiety [Not Recovered/Not Resolved]
  - Influenza like illness [Recovered/Resolved]
